FAERS Safety Report 17656115 (Version 4)
Quarter: 2021Q3

REPORT INFORMATION
  Report Type: Report from Study
  Country: TW (occurrence: TW)
  Receive Date: 20200410
  Receipt Date: 20210817
  Transmission Date: 20211014
  Serious: Yes (Hospitalization, Other)
  Sender: FDA-Public Use
  Company Number: TW-SA-2020SA089182

PATIENT
  Age: 41 Year
  Sex: Female

DRUGS (2)
  1. LARONIDASE [Suspect]
     Active Substance: LARONIDASE
     Dosage: 8 DF, QOW
     Route: 042
     Dates: start: 20210805, end: 20210805
  2. LARONIDASE [Suspect]
     Active Substance: LARONIDASE
     Dosage: 8 DF, QW, (8 VIALS)
     Route: 042

REACTIONS (22)
  - Dyspnoea [Recovering/Resolving]
  - Tension headache [Not Recovered/Not Resolved]
  - Laryngeal hypertrophy [Recovering/Resolving]
  - Dizziness [Not Recovered/Not Resolved]
  - Suicidal ideation [Unknown]
  - Central venous catheterisation [Unknown]
  - Thrombosis [Unknown]
  - Uterine hypotonus [Unknown]
  - Hysterectomy [Recovering/Resolving]
  - Urethral obstruction [Not Recovered/Not Resolved]
  - Hepatomegaly [Not Recovered/Not Resolved]
  - Back pain [Not Recovered/Not Resolved]
  - Dizziness [Not Recovered/Not Resolved]
  - Pain [Unknown]
  - Vomiting [Recovered/Resolved]
  - Iron deficiency anaemia [Recovering/Resolving]
  - Haemoglobin decreased [Recovering/Resolving]
  - Urinary retention [Not Recovered/Not Resolved]
  - Red blood cell count decreased [Recovering/Resolving]
  - Dysuria [Not Recovered/Not Resolved]
  - Mood altered [Not Recovered/Not Resolved]
  - Product use issue [Unknown]

NARRATIVE: CASE EVENT DATE: 2020
